FAERS Safety Report 25455305 (Version 1)
Quarter: 2025Q2

REPORT INFORMATION
  Report Type: Other
  Country: CN (occurrence: CN)
  Receive Date: 20250619
  Receipt Date: 20250619
  Transmission Date: 20250717
  Serious: Yes (Life-Threatening, Hospitalization, Disabling, Other)
  Sender: QILU PHARMACEUTICAL
  Company Number: CN-QILU PHARMACEUTICAL CO.LTD.-QLU-000123-2025

PATIENT
  Age: 27 Year
  Sex: Male
  Weight: 65 kg

DRUGS (8)
  1. OLANZAPINE [Suspect]
     Active Substance: OLANZAPINE
     Indication: Intentional overdose
     Dosage: 50 MG ONCE A DAY (10 TABLETS ONCE)
     Route: 048
     Dates: start: 20250604, end: 20250604
  2. UNSPECIFIED INGREDIENT [Suspect]
     Active Substance: UNSPECIFIED INGREDIENT
     Indication: Intentional overdose
     Route: 048
     Dates: start: 20250604, end: 20250604
  3. CEFACLOR [Suspect]
     Active Substance: CEFACLOR
     Indication: Intentional overdose
     Dosage: 1.875 MG PER DAY (5 TABLETS ONCE)
     Route: 048
     Dates: start: 20250604, end: 20250604
  4. ACETAMINOPHEN [Suspect]
     Active Substance: ACETAMINOPHEN
     Indication: Intentional overdose
     Dosage: 20.5 G ONCE A DAY (20 TABLETS ONCE)
     Route: 048
     Dates: start: 20250604, end: 20250604
  5. IBUPROFEN [Suspect]
     Active Substance: IBUPROFEN
     Indication: Intentional overdose
     Dosage: 6 G ONCE A DAY (20 CAPSULES ONCE)
     Route: 048
     Dates: start: 20250604, end: 20250604
  6. LAMOTRIGINE [Suspect]
     Active Substance: LAMOTRIGINE
     Indication: Mixed anxiety and depressive disorder
     Dosage: 1300 MG ONCE A DAY (26 TABLETS ONCE)
     Route: 048
     Dates: start: 20250604, end: 20250604
  7. CLONAZEPAM [Suspect]
     Active Substance: CLONAZEPAM
     Indication: Intentional overdose
     Dosage: 12 MG ONCE A DAY (6 TABLETS ONCE)
     Route: 048
     Dates: start: 20250604, end: 20250604
  8. SERTRALINE HYDROCHLORIDE [Suspect]
     Active Substance: SERTRALINE HYDROCHLORIDE
     Indication: Intentional overdose
     Dosage: 1000 MG ONCE A DAY (24 TABLETS ONCE)
     Route: 048
     Dates: start: 20250604, end: 20250604

REACTIONS (5)
  - Hypokalaemia [Recovered/Resolved]
  - Suicide attempt [Unknown]
  - Loss of consciousness [Recovered/Resolved]
  - Somnolence [Recovered/Resolved]
  - Intentional overdose [Recovered/Resolved]

NARRATIVE: CASE EVENT DATE: 20250604
